FAERS Safety Report 5874171-4 (Version None)
Quarter: 2008Q3

REPORT INFORMATION
  Report Type: 
  Country: None (occurrence: None)
  Receive Date: 20080908
  Receipt Date: 20080903
  Transmission Date: 20090109
  Serious: Yes (Hospitalization)
  Sender: FDA-Public Use
  Company Number: JP-EISAI MEDICAL RESEARCH-E2090-00348-SPO-JP

PATIENT
  Sex: Male

DRUGS (13)
  1. EXCEGRAN [Suspect]
     Indication: CONVULSION
     Route: 048
     Dates: start: 20071013, end: 20071019
  2. EXCEGRAN [Suspect]
     Indication: HEAD INJURY
     Route: 048
     Dates: start: 20071020, end: 20071104
  3. VANCOMYCIN HYDROCHLORIDE [Concomitant]
     Indication: INFECTION
     Route: 042
     Dates: start: 20071025, end: 20071108
  4. CIPROFLOXACIN HCL [Concomitant]
     Indication: INFECTION
     Route: 042
     Dates: start: 20071026, end: 20071105
  5. PERDIPINE LA [Concomitant]
     Indication: HYPERTENSION
     Route: 048
     Dates: start: 20071108, end: 20071112
  6. RENIVEZE [Concomitant]
     Indication: HYPERTENSION
     Route: 048
     Dates: start: 20071022, end: 20071108
  7. AMSULMERCK (SULBACTAM SODIUM AMPICILLIN SODIUM) [Concomitant]
     Indication: MENINGITIS
     Route: 042
     Dates: start: 20071012, end: 20071018
  8. CLAFORAN [Concomitant]
     Indication: MENINGITIS
     Route: 065
     Dates: start: 20071016, end: 20071018
  9. ZANTAC [Concomitant]
     Indication: GASTRIC ULCER
     Route: 065
     Dates: start: 20071012, end: 20071015
  10. MUSCURATE [Concomitant]
     Indication: SEDATION
     Dosage: UNKNOWN
     Route: 042
     Dates: start: 20071012, end: 20071015
  11. MIDAZOLAM HCL [Concomitant]
     Indication: SEDATION
     Dosage: UNKNOWN
     Route: 042
     Dates: start: 20071012, end: 20071016
  12. SUCRALFATE [Concomitant]
     Indication: GASTRIC ULCER
     Route: 048
     Dates: start: 20071015
  13. TOBRACIN [Concomitant]
     Indication: MENINGITIS
     Route: 065
     Dates: start: 20071022, end: 20071022

REACTIONS (4)
  - ERYTHEMA [None]
  - GRANULOCYTE COUNT DECREASED [None]
  - HEPATIC FUNCTION ABNORMAL [None]
  - METABOLIC ACIDOSIS [None]
